FAERS Safety Report 4873082-0 (Version None)
Quarter: 2005Q4

REPORT INFORMATION
  Report Type: 
  Country: None (occurrence: None)
  Receive Date: 20051201
  Receipt Date: 20050716
  Transmission Date: 20060501
  Serious: No
  Sender: FDA-Public Use
  Company Number: 2005PV000401

PATIENT
  Age: 61 Year
  Sex: Male
  Weight: 136.3059 kg

DRUGS (9)
  1. BYETTA [Suspect]
     Indication: DIABETES MELLITUS NON-INSULIN-DEPENDENT
     Dosage: 5 MCG; BID; SC
     Route: 058
     Dates: start: 20050714
  2. AVANDAMET [Concomitant]
  3. ACIPHEX [Concomitant]
  4. WELLBUTRIN XL [Concomitant]
  5. LAMICTAL [Concomitant]
  6. CLONAZEPAM [Concomitant]
  7. CRESTOR [Concomitant]
  8. ATENOLOL [Concomitant]
  9. AMBIEN [Concomitant]

REACTIONS (3)
  - DIARRHOEA [None]
  - DIZZINESS [None]
  - GASTROINTESTINAL PAIN [None]
